FAERS Safety Report 14823894 (Version 1)
Quarter: 2018Q2

REPORT INFORMATION
  Report Type: Spontaneous
  Country: US (occurrence: US)
  Receive Date: 20180428
  Receipt Date: 20180428
  Transmission Date: 20180711
  Serious: No
  Sender: FDA-Public Use
  Company Number: US-FRESENIUS MEDICAL CARE RENAL THERAPIES GROUP-FMC-1804-000623

PATIENT
  Age: 55 Year
  Sex: Male
  Weight: 129 kg

DRUGS (15)
  1. GABAPENTIN. [Concomitant]
     Active Substance: GABAPENTIN
  2. FLUTICASONE. [Concomitant]
     Active Substance: FLUTICASONE
  3. HYDRALAZINE [Concomitant]
     Active Substance: HYDRALAZINE HYDROCHLORIDE
  4. ACETAMINOPHEN. [Concomitant]
     Active Substance: ACETAMINOPHEN
  5. BISACODYL. [Concomitant]
     Active Substance: BISACODYL
  6. ISOSORBIDE. [Concomitant]
     Active Substance: ISOSORBIDE
  7. LIPITOR [Concomitant]
     Active Substance: ATORVASTATIN CALCIUM
  8. DELFLEX WITH DEXTROSE 2.5% LOW MAGNESIUM LOW CALCIUM [Suspect]
     Active Substance: CALCIUM CHLORIDE\DEXTROSE\MAGNESIUM CHLORIDE\SODIUM CHLORIDE\SODIUM LACTATE
     Indication: END STAGE RENAL DISEASE
     Dosage: 5 CYCLES OF 2500ML
     Route: 033
     Dates: start: 201704
  9. FERROUS SULFATE. [Concomitant]
     Active Substance: FERROUS SULFATE
  10. CARVEDILOL. [Concomitant]
     Active Substance: CARVEDILOL
  11. ERGOCALCIFEROL. [Concomitant]
     Active Substance: ERGOCALCIFEROL
  12. ASPRIN [Concomitant]
     Active Substance: ASPIRIN
  13. AMLODIPINE [Concomitant]
     Active Substance: AMLODIPINE BESYLATE
  14. LANTUS [Concomitant]
     Active Substance: INSULIN GLARGINE
  15. ALLOPURINOL. [Concomitant]
     Active Substance: ALLOPURINOL

REACTIONS (2)
  - Fluid overload [Recovering/Resolving]
  - Abdominal distension [Recovering/Resolving]

NARRATIVE: CASE EVENT DATE: 20180403
